FAERS Safety Report 23441943 (Version 3)
Quarter: 2024Q2

REPORT INFORMATION
  Report Type: Spontaneous
  Country: CO (occurrence: CO)
  Receive Date: 20240125
  Receipt Date: 20240422
  Transmission Date: 20240715
  Serious: Yes (Hospitalization, Other)
  Sender: FDA-Public Use
  Company Number: CO-002147023-PHHY2017CO054980

PATIENT
  Age: 62 Year
  Sex: Female
  Weight: 72 kg

DRUGS (19)
  1. ATORVASTATIN [Suspect]
     Active Substance: ATORVASTATIN
     Indication: Blood cholesterol abnormal
     Dosage: 40 MG, QD (STARTED 8 YEARS AGO)
     Route: 048
  2. ASPIRIN [Suspect]
     Active Substance: ASPIRIN
     Indication: Product used for unknown indication
     Dosage: 100 MG, QD
     Route: 065
  3. RUXOLITINIB [Suspect]
     Active Substance: RUXOLITINIB
     Dosage: 10 MG, Q12H (2 AND A HALF YEARS AGO)
     Route: 048
  4. RUXOLITINIB [Suspect]
     Active Substance: RUXOLITINIB
     Dosage: 20 MG, QD
     Route: 048
     Dates: start: 20160107
  5. RUXOLITINIB [Suspect]
     Active Substance: RUXOLITINIB
     Dosage: 20 MG, QD
     Route: 048
  6. RUXOLITINIB [Suspect]
     Active Substance: RUXOLITINIB
     Dosage: 20 MG, Q12H (STARTED MORE THAN 5 YEARS AGO AND STOPPED 2 AND A HALF YEARS AGO)
     Route: 048
  7. RUXOLITINIB [Suspect]
     Active Substance: RUXOLITINIB
     Indication: Primary myelofibrosis
     Dosage: 4 DF, Q12H
     Route: 048
     Dates: start: 20160120
  8. RUXOLITINIB [Suspect]
     Active Substance: RUXOLITINIB
     Indication: Myelofibrosis
     Dosage: 4 DF, Q12H (4 TABLETS IN THE MORNING AND 4 TABLETS AT NIGHT)
     Route: 048
     Dates: start: 20170419
  9. RUXOLITINIB [Suspect]
     Active Substance: RUXOLITINIB
     Dosage: 40 MG, QD
     Route: 048
  10. RUXOLITINIB [Suspect]
     Active Substance: RUXOLITINIB
     Dosage: UNK
     Route: 048
  11. LOSARTAN [Suspect]
     Active Substance: LOSARTAN
     Indication: Product used for unknown indication
     Dosage: 50 MG, QD
     Route: 065
  12. METOPROLOL [Suspect]
     Active Substance: METOPROLOL
     Indication: Hypertension
     Dosage: 50 MG, Q12H (STARTED 8 YEARS AGO)
     Route: 048
  13. ASCORBIC ACID [Suspect]
     Active Substance: ASCORBIC ACID
     Indication: Product used for unknown indication
     Dosage: UNK
     Route: 065
  14. ALLOPURINOL [Concomitant]
     Active Substance: ALLOPURINOL
     Indication: Blood uric acid abnormal
     Dosage: 100 MG, QD (STARTED7 MONTHS AGO)
     Route: 048
  15. ERYTHROPOIETIN [Concomitant]
     Active Substance: ERYTHROPOIETIN
     Indication: Product used for unknown indication
     Dosage: UNK, QOD (3 TIMES A WEEK) (FORMULATION: AMPOULE)
     Route: 058
  16. FERROUS SULFATE [Concomitant]
     Active Substance: FERROUS SULFATE
     Indication: Product used for unknown indication
     Dosage: UNK
     Route: 048
  17. FUROSEMIDE [Concomitant]
     Active Substance: FUROSEMIDE
     Indication: Product used for unknown indication
     Dosage: 40 MG, DAILY
     Route: 048
  18. LEVOMEPROMAZINE [Concomitant]
     Active Substance: LEVOMEPROMAZINE
     Indication: Sleep disorder
     Dosage: 8 DRP, QD (STARTED 7 MONTHS AGO)
     Route: 048
  19. VITAMIN D3 [Concomitant]
     Active Substance: CHOLECALCIFEROL
     Indication: Product used for unknown indication
     Dosage: UNK
     Route: 065

REACTIONS (50)
  - Myelosuppression [Unknown]
  - Abdominal wall haematoma [Unknown]
  - Syncope [Unknown]
  - Weight decreased [Unknown]
  - Illness [Unknown]
  - Decreased immune responsiveness [Unknown]
  - Renal disorder [Unknown]
  - Pain [Unknown]
  - Fear [Unknown]
  - Influenza [Recovered/Resolved]
  - Psychiatric symptom [Unknown]
  - Haematoma [Recovered/Resolved]
  - Haemoglobin decreased [Unknown]
  - Hernia [Recovered/Resolved]
  - Wound [Recovered/Resolved]
  - Contusion [Recovered/Resolved]
  - Urinary tract infection [Unknown]
  - Cough [Recovered/Resolved]
  - Dyspnoea [Unknown]
  - Asthenia [Unknown]
  - Malaise [Unknown]
  - Fatigue [Recovering/Resolving]
  - Anaemia [Recovering/Resolving]
  - Hyperparathyroidism [Unknown]
  - Cholelithiasis [Unknown]
  - Choking [Unknown]
  - Respiratory arrest [Recovered/Resolved]
  - Haemorrhage [Recovered/Resolved]
  - Deafness [Unknown]
  - Hypothyroidism [Unknown]
  - Cerebrovascular accident [Unknown]
  - Splenomegaly [Unknown]
  - Abdominal distension [Unknown]
  - Abdominal discomfort [Unknown]
  - Splenitis [Unknown]
  - Affective disorder [Unknown]
  - Gastritis [Unknown]
  - Hyperhidrosis [Unknown]
  - Dysphonia [Unknown]
  - Depressed mood [Unknown]
  - Platelet count increased [Unknown]
  - Limb discomfort [Unknown]
  - Weight increased [Unknown]
  - Dizziness [Unknown]
  - Cough [Recovered/Resolved]
  - Contusion [Recovered/Resolved]
  - Contusion [Unknown]
  - Haematoma [Unknown]
  - Injection site haematoma [Unknown]
  - Inappropriate schedule of product administration [Unknown]

NARRATIVE: CASE EVENT DATE: 20170404
